FAERS Safety Report 9478173 (Version 1)
Quarter: 2013Q3

REPORT INFORMATION
  Report Type: Spontaneous
  Country: GB (occurrence: GB)
  Receive Date: 20130827
  Receipt Date: 20130827
  Transmission Date: 20140515
  Serious: Yes (Disabling)
  Sender: FDA-Public Use
  Company Number: GB-PFIZER INC-2013243596

PATIENT
  Age: 53 Year
  Sex: Male

DRUGS (9)
  1. VENLAFAXINE HCL [Suspect]
     Dosage: 150 MG, 1X/DAY IN THE MORNING
  2. LITHIUM [Suspect]
     Dosage: 1000 MG, 1X/DAY AT NIGHT
  3. LAMOTRIGINE [Suspect]
     Dosage: 200 MG, 2X/DAY
  4. ARIPIPRAZOLE [Suspect]
     Dosage: 15 MG, 1X/DAY EVERY MORNING
  5. PERINDOPRIL [Concomitant]
     Dosage: 8 MG, 1X/DAY
  6. INDAPAMIDE [Concomitant]
     Dosage: 1.5 MG, 1X/DAY
  7. ATORVASTATIN [Concomitant]
     Dosage: 40 MG, 1X/DAY EVERY NIGHT
  8. INSULIN GLARGINE [Concomitant]
     Dosage: UNK
  9. HUMALOG [Concomitant]
     Dosage: 1.5 ML, UNK 100 UNITS/ML SOLUTION FOR INJECTION

REACTIONS (5)
  - Balance disorder [Not Recovered/Not Resolved]
  - Dysphagia [Not Recovered/Not Resolved]
  - Hyperhidrosis [Not Recovered/Not Resolved]
  - Tremor [Unknown]
  - Fall [Unknown]
